FAERS Safety Report 20596485 (Version 1)
Quarter: 2022Q1

REPORT INFORMATION
  Report Type: Spontaneous
  Country: US (occurrence: US)
  Receive Date: 20220315
  Receipt Date: 20220315
  Transmission Date: 20220423
  Serious: No
  Sender: FDA-Public Use
  Company Number: US-PFIZER INC-2019422421

PATIENT
  Age: 15 Year
  Sex: Male
  Weight: 40.37 kg

DRUGS (2)
  1. GENOTROPIN [Suspect]
     Active Substance: SOMATROPIN
     Indication: Growth hormone deficiency
     Dosage: 1.0 MG DAILY
     Dates: start: 20190720
  2. GENOTROPIN [Suspect]
     Active Substance: SOMATROPIN
     Dosage: 1MG ONCE A DAY
     Route: 058
     Dates: start: 201908

REACTIONS (2)
  - Device breakage [Unknown]
  - Drug dose omission by device [Unknown]
